FAERS Safety Report 9759721 (Version 2)
Quarter: 2015Q3

REPORT INFORMATION
  Report Type: Spontaneous
  Country: US (occurrence: US)
  Receive Date: 20131216
  Receipt Date: 20150806
  Transmission Date: 20151125
  Serious: No
  Sender: FDA-Public Use
  Company Number: US-GILEAD-2010-0029031

PATIENT
  Age: 69 Year
  Weight: 55.34 kg

DRUGS (11)
  1. LASIX [Concomitant]
     Active Substance: FUROSEMIDE
  2. TUMS [Concomitant]
     Active Substance: CALCIUM CARBONATE
  3. REVATIO [Concomitant]
     Active Substance: SILDENAFIL CITRATE
  4. TYLENOL [Concomitant]
     Active Substance: ACETAMINOPHEN
  5. LETAIRIS [Suspect]
     Active Substance: AMBRISENTAN
     Indication: PULMONARY ARTERIAL HYPERTENSION
     Route: 048
     Dates: start: 20100407
  6. COZAAR [Concomitant]
     Active Substance: LOSARTAN POTASSIUM
  7. STOOL SOFTENER [Concomitant]
     Active Substance: DOCUSATE CALCIUM
  8. A-Z MULTIVITAMIN [Concomitant]
  9. CELEXA [Concomitant]
     Active Substance: CITALOPRAM HYDROBROMIDE
  10. WARFARIN [Concomitant]
     Active Substance: WARFARIN
  11. DIGOXIN. [Concomitant]
     Active Substance: DIGOXIN

REACTIONS (4)
  - Fluid retention [Unknown]
  - Wheezing [Unknown]
  - Weight increased [Unknown]
  - Peripheral swelling [Unknown]

NARRATIVE: CASE EVENT DATE: 20100505
